FAERS Safety Report 9159690 (Version 2)
Quarter: 2013Q1

REPORT INFORMATION
  Report Type: Spontaneous
  Country: US (occurrence: US)
  Receive Date: 20130313
  Receipt Date: 20130328
  Transmission Date: 20140127
  Serious: No
  Sender: FDA-Public Use
  Company Number: US-PFIZER INC-2013084734

PATIENT
  Age: 86 Year
  Sex: Female
  Weight: 68.03 kg

DRUGS (1)
  1. CHANTIX [Suspect]
     Indication: SMOKING CESSATION THERAPY
     Dosage: UNK
     Route: 048
     Dates: start: 201303

REACTIONS (5)
  - Abdominal discomfort [Unknown]
  - Chest discomfort [Unknown]
  - Flatulence [Unknown]
  - Fatigue [Unknown]
  - Feeling abnormal [Unknown]
